FAERS Safety Report 12171945 (Version 4)
Quarter: 2016Q2

REPORT INFORMATION
  Report Type: Report from Study
  Country: GB (occurrence: GB)
  Receive Date: 20160311
  Receipt Date: 20160418
  Transmission Date: 20160815
  Serious: Yes (Hospitalization)
  Sender: FDA-Public Use
  Company Number: GB-ABBVIE-16P-167-1576178-00

PATIENT
  Age: 74 Year
  Sex: Female

DRUGS (13)
  1. DULCOLAX NOS [Concomitant]
     Active Substance: BISACODYL OR DOCUSATE SODIUM
     Indication: NEUROGENIC BOWEL
     Dates: start: 201403
  2. LOPERAMIDE [Concomitant]
     Active Substance: LOPERAMIDE
     Indication: NEUROGENIC BOWEL
     Dates: start: 201403
  3. ASPIRIN. [Concomitant]
     Active Substance: ASPIRIN
     Indication: TRANSIENT ISCHAEMIC ATTACK
  4. LORATADINE. [Concomitant]
     Active Substance: LORATADINE
     Indication: SEASONAL ALLERGY
     Dates: start: 20140512
  5. TIBOLONE [Concomitant]
     Active Substance: TIBOLONE
     Indication: MENOPAUSAL SYMPTOMS
     Dates: start: 2002
  6. ASPIRIN. [Concomitant]
     Active Substance: ASPIRIN
     Indication: PROPHYLAXIS
     Dates: start: 200406
  7. FOLIC ACID. [Concomitant]
     Active Substance: FOLIC ACID
     Indication: RHEUMATOID ARTHRITIS
     Dates: start: 200911
  8. MACROGOL COMPOUND [Concomitant]
     Indication: NEUROGENIC BOWEL
     Dates: start: 2012
  9. METHOTREXATE [Concomitant]
     Active Substance: METHOTREXATE
     Indication: RHEUMATOID ARTHRITIS
     Dates: start: 200911
  10. HUMIRA [Suspect]
     Active Substance: ADALIMUMAB
     Indication: RHEUMATOID ARTHRITIS
     Route: 058
     Dates: start: 20141015
  11. SIMVASTATIN. [Concomitant]
     Active Substance: SIMVASTATIN
     Indication: HYPERCHOLESTEROLAEMIA
     Dates: start: 20040908
  12. TEMAZEPAM. [Concomitant]
     Active Substance: TEMAZEPAM
     Indication: PROPHYLAXIS
     Dates: start: 2004
  13. TEMAZEPAM. [Concomitant]
     Active Substance: TEMAZEPAM
     Indication: TRANSIENT ISCHAEMIC ATTACK

REACTIONS (1)
  - Rectal prolapse [Recovered/Resolved]

NARRATIVE: CASE EVENT DATE: 201505
